FAERS Safety Report 7761233-X (Version None)
Quarter: 2011Q3

REPORT INFORMATION
  Report Type: 
  Country: None (occurrence: None)
  Receive Date: 20110920
  Receipt Date: 20110908
  Transmission Date: 20111222
  Serious: Yes (Hospitalization)
  Sender: FDA-Public Use
  Company Number: CA-JNJFOC-20110904846

PATIENT
  Sex: Male
  Weight: 100 kg

DRUGS (15)
  1. ASACOL [Concomitant]
     Indication: CROHN'S DISEASE
     Route: 065
  2. TYLENOL-500 [Concomitant]
     Indication: PAIN
     Route: 065
  3. TRAZODONE HCL [Concomitant]
     Indication: SLEEP DISORDER THERAPY
     Route: 048
  4. REMICADE [Suspect]
     Indication: CROHN'S DISEASE
     Route: 042
     Dates: start: 20080807
  5. CALCIUM CARBONATE [Concomitant]
     Indication: OSTEOPOROSIS
     Route: 048
  6. PANTOPRAZOLE SODIUM [Concomitant]
     Route: 048
  7. ACTONEL [Concomitant]
     Indication: OSTEOPOROSIS
     Route: 048
  8. VITAMIN D [Concomitant]
     Indication: OSTEOPOROSIS
     Route: 048
  9. URSODIOL [Concomitant]
     Indication: HEPATIC ENZYME INCREASED
     Route: 048
  10. PERCOCET [Concomitant]
     Indication: PAIN
     Route: 065
  11. PREDNISONE [Concomitant]
     Indication: AUTOIMMUNE DISORDER
     Route: 048
  12. HYDROXYZINE [Concomitant]
     Indication: ANTIALLERGIC THERAPY
     Route: 048
  13. PREDNISONE [Concomitant]
     Indication: WEGENER'S GRANULOMATOSIS
     Route: 048
  14. CODEINE SULFATE [Concomitant]
     Indication: PAIN
     Route: 065
  15. ESCITALOPRAM [Concomitant]
     Indication: ANTIDEPRESSANT THERAPY
     Route: 048

REACTIONS (5)
  - CHOLELITHIASIS [None]
  - VASCULITIS [None]
  - EYE HAEMORRHAGE [None]
  - PERICARDITIS [None]
  - HEPATIC PAIN [None]
